FAERS Safety Report 5944071-X (Version None)
Quarter: 2008Q4

REPORT INFORMATION
  Report Type: 
  Country: None (occurrence: None)
  Receive Date: 20081106
  Receipt Date: 20081028
  Transmission Date: 20090506
  Serious: Yes (Other)
  Sender: FDA-Public Use
  Company Number: ZA-ABBOTT-08P-143-0484515-00

PATIENT
  Sex: Female

DRUGS (4)
  1. EPILIM SYRUP [Suspect]
     Indication: EPILEPSY
     Route: 048
     Dates: start: 20080701, end: 20081001
  2. PHENOBARBITAL TAB [Concomitant]
     Indication: EPILEPSY
     Route: 048
     Dates: start: 20080501
  3. AMLODIPINE BESYLATE [Concomitant]
     Indication: HYPERTENSION
     Route: 048
     Dates: start: 20080701
  4. CORTICOTROPIN [Concomitant]
     Indication: EPILEPSY
     Route: 065
     Dates: start: 20080601

REACTIONS (1)
  - LIVER FUNCTION TEST ABNORMAL [None]
